FAERS Safety Report 24797441 (Version 4)
Quarter: 2025Q3

REPORT INFORMATION
  Report Type: Report from Study
  Country: US (occurrence: US)
  Receive Date: 20250102
  Receipt Date: 20250829
  Transmission Date: 20251020
  Serious: No
  Sender: SUNOVION
  Company Number: US-SMPA-2024SPA006091AA

PATIENT
  Age: 74 Year
  Sex: Male

DRUGS (11)
  1. ORGOVYX [Suspect]
     Active Substance: RELUGOLIX
     Indication: Prostate cancer
     Route: 048
  2. ORGOVYX [Suspect]
     Active Substance: RELUGOLIX
     Dosage: 120 MG, QD
     Route: 048
     Dates: start: 202501
  3. CLOPIDOGREL [Concomitant]
     Active Substance: CLOPIDOGREL BISULFATE
  4. GLIPIZIDE [Concomitant]
     Active Substance: GLIPIZIDE
  5. ASPIRIN [Concomitant]
     Active Substance: ASPIRIN
  6. VITAMINS [Concomitant]
     Active Substance: VITAMINS
  7. VITAMIN D3 [Concomitant]
     Active Substance: CHOLECALCIFEROL
  8. ROSUVASTATIN [Concomitant]
     Active Substance: ROSUVASTATIN
  9. TAMSULOSIN [Concomitant]
     Active Substance: TAMSULOSIN
  10. VITAMIN C [Concomitant]
     Active Substance: ASCORBIC ACID
  11. XTANDI [Concomitant]
     Active Substance: ENZALUTAMIDE

REACTIONS (6)
  - Weight decreased [Unknown]
  - Blood glucose increased [Unknown]
  - Fatigue [Unknown]
  - Hot flush [Unknown]
  - Therapy interrupted [Recovered/Resolved]
  - Incorrect dose administered [Recovered/Resolved]
